FAERS Safety Report 8341694-8 (Version None)
Quarter: 2012Q2

REPORT INFORMATION
  Report Type: 
  Country: None (occurrence: None)
  Receive Date: 20120507
  Receipt Date: 20120501
  Transmission Date: 20120825
  Serious: Yes (Disabling, Other)
  Sender: FDA-Public Use
  Company Number: US-PFIZER INC-2012107029

PATIENT
  Sex: Male
  Weight: 90.703 kg

DRUGS (9)
  1. LISINOPRIL [Concomitant]
     Dosage: UNK
  2. VITAMIN D [Concomitant]
     Dosage: UNK
  3. LOSARTAN [Concomitant]
     Dosage: UNK
  4. FERROUS SULFATE [Concomitant]
     Dosage: UNK
  5. VIAGRA [Suspect]
     Indication: ERECTILE DYSFUNCTION
     Dosage: 100 MG, AS NEEDED
     Route: 048
     Dates: start: 20110101
  6. POTASSIUM [Concomitant]
     Dosage: UNK
  7. ONDANSETRON [Concomitant]
     Dosage: 8 MG, UNK
  8. OMEPRAZOLE [Concomitant]
     Dosage: UNK
  9. VITAMIN B-12 [Concomitant]
     Dosage: UNK

REACTIONS (1)
  - GASTRIC CANCER [None]
